FAERS Safety Report 10596855 (Version 3)
Quarter: 2014Q4

REPORT INFORMATION
  Report Type: Report from Study
  Country: CA (occurrence: CA)
  Receive Date: 20141120
  Receipt Date: 20141216
  Transmission Date: 20150529
  Serious: Yes (Hospitalization)
  Sender: FDA-Public Use
  Company Number: CA-TAKEDA-2014TUS011608

PATIENT
  Age: 27 Year
  Sex: Male
  Weight: 74 kg

DRUGS (24)
  1. TYLENOL ES [Concomitant]
     Indication: HEADACHE
  2. SALOFALK SUPPOSITORIES [Concomitant]
     Indication: COLITIS ULCERATIVE
     Dosage: 1 G, Q2 DAYS
     Route: 054
     Dates: start: 20120206, end: 201206
  3. MEZAVANT [Concomitant]
     Active Substance: MESALAMINE
     Indication: COLITIS ULCERATIVE
     Dosage: 2.4 G, BID
     Route: 048
     Dates: start: 20120529
  4. CORTIFOAM [Concomitant]
     Active Substance: HYDROCORTISONE ACETATE
     Dosage: 1 APP, OD
     Route: 054
     Dates: start: 20140825, end: 20140908
  5. HYDROMORPHONE [Concomitant]
     Active Substance: HYDROMORPHONE
     Indication: PNEUMONIA VIRAL
     Dosage: 1-2 MG, Q2H PRN
     Route: 042
     Dates: start: 20141024, end: 20141031
  6. SALOFALK SUPPOSITORIES [Concomitant]
     Dosage: 4 G, Q2 DAYS
     Route: 054
     Dates: start: 20130326, end: 201305
  7. BETNESOL [Concomitant]
     Active Substance: BETAMETHASONE
     Dosage: UNK, QD
     Route: 048
     Dates: start: 20140930
  8. CEFTRIAXONE. [Concomitant]
     Active Substance: CEFTRIAXONE
     Indication: PNEUMONIA VIRAL
     Dosage: 1 G, QD
     Route: 042
     Dates: start: 20141022, end: 20141028
  9. CORTIFOAM [Concomitant]
     Active Substance: HYDROCORTISONE ACETATE
     Dosage: 1 APP, BID
     Route: 054
     Dates: start: 20140617, end: 20140630
  10. TYLENOL [Concomitant]
     Active Substance: ACETAMINOPHEN
     Indication: ABDOMINAL PAIN
     Dosage: 650 MG, Q4HR
     Route: 048
     Dates: start: 20141023, end: 20141103
  11. PERCOCET [Concomitant]
     Active Substance: ACETAMINOPHEN\OXYCODONE HYDROCHLORIDE
     Indication: PNEUMONIA VIRAL
     Dosage: 1 DF, PRN
     Route: 048
     Dates: start: 20141108
  12. VEDOLIZUMAB [Suspect]
     Active Substance: VEDOLIZUMAB
     Indication: COLITIS ULCERATIVE
     Dosage: 300 MG
     Route: 042
     Dates: start: 20120618, end: 20140930
  13. CORTIFOAM [Concomitant]
     Active Substance: HYDROCORTISONE ACETATE
     Dosage: 1 APP, OD
     Route: 054
     Dates: start: 20140930
  14. VENTOLIN [Concomitant]
     Active Substance: ALBUTEROL SULFATE
     Indication: PNEUMONIA VIRAL
     Dosage: 100 MCG/DOSE, 1-2 PUFFS, PRN
     Route: 050
     Dates: start: 20141024
  15. TYLENOL [Concomitant]
     Active Substance: ACETAMINOPHEN
     Indication: PNEUMONIA VIRAL
     Dosage: 10 MG, TID
     Route: 048
     Dates: start: 20121106, end: 201304
  16. TUSSIONEX PENNKINETIC [Concomitant]
     Active Substance: CHLORPHENIRAMINE\HYDROCODONE
     Indication: PNEUMONIA VIRAL
     Dosage: 10 MG/5MG PRN
     Route: 048
     Dates: start: 20141112, end: 20141114
  17. ENOXAPARIN [Concomitant]
     Active Substance: ENOXAPARIN
     Indication: PNEUMONIA VIRAL
     Dosage: 40 MG, QD
     Route: 058
     Dates: start: 20141023, end: 20141102
  18. TYLENOL ES [Concomitant]
     Indication: ABDOMINAL PAIN
     Dosage: 1000 MG, PRN
     Route: 048
     Dates: start: 20120716
  19. SALOFALK SUPPOSITORIES [Concomitant]
     Dosage: 4 G, Q2 DAYS
     Route: 054
     Dates: start: 20140708
  20. CORTIFOAM [Concomitant]
     Active Substance: HYDROCORTISONE ACETATE
     Indication: RECTAL HAEMORRHAGE
     Dosage: 1 APP, BID
     Route: 054
     Dates: start: 20140425, end: 20140512
  21. HYDROMORPHONE [Concomitant]
     Active Substance: HYDROMORPHONE
     Dosage: 6 MG, Q4HR
     Route: 048
     Dates: start: 20141024, end: 20141107
  22. NYSTATIN. [Concomitant]
     Active Substance: NYSTATIN
     Indication: PNEUMONIA VIRAL
     Dosage: 500.000 UNITS, QID
     Route: 048
     Dates: start: 20141026, end: 20141102
  23. TYLENOL [Concomitant]
     Active Substance: ACETAMINOPHEN
     Dosage: 1000 MG, PRN
     Route: 048
     Dates: start: 20141104
  24. AZITHROMYCIN [Concomitant]
     Active Substance: AZITHROMYCIN ANHYDROUS
     Indication: PNEUMONIA VIRAL
     Dosage: 250 MG, QD
     Route: 048
     Dates: start: 20141023, end: 20141026

REACTIONS (1)
  - Myocarditis [Recovered/Resolved]

NARRATIVE: CASE EVENT DATE: 20141113
